FAERS Safety Report 6383189-7 (Version None)
Quarter: 2009Q3

REPORT INFORMATION
  Report Type: 
  Country: None (occurrence: None)
  Receive Date: 20090929
  Receipt Date: 20090918
  Transmission Date: 20100115
  Serious: Yes (Other)
  Sender: FDA-Public Use
  Company Number: 2009US000248

PATIENT
  Age: 22 Year
  Sex: Male
  Weight: 87.5 kg

DRUGS (5)
  1. PROTOPIC [Suspect]
     Indication: ECZEMA
     Dosage: 1 DF, UID/QD, TOPICAL
     Route: 061
     Dates: start: 20030101, end: 20060801
  2. ELIDEL [Suspect]
     Indication: ECZEMA
     Dosage: TOPICAL
     Route: 061
  3. ZYRTEC [Concomitant]
  4. ADVAIR DISKUS 100/50 [Concomitant]
  5. ALBUTEROL [Concomitant]

REACTIONS (16)
  - CHILLS [None]
  - DECREASED APPETITE [None]
  - FATIGUE [None]
  - HAEMOGLOBIN DECREASED [None]
  - HODGKIN'S DISEASE NODULAR SCLEROSIS STAGE IV [None]
  - LYMPHADENOPATHY [None]
  - LYMPHADENOPATHY MEDIASTINAL [None]
  - MALIGNANT MELANOMA [None]
  - METABOLIC DISORDER [None]
  - NEUTROPHIL COUNT INCREASED [None]
  - NIGHT SWEATS [None]
  - PLATELET COUNT INCREASED [None]
  - PYREXIA [None]
  - SPLENOMEGALY [None]
  - WEIGHT DECREASED [None]
  - WHITE BLOOD CELL COUNT INCREASED [None]
